FAERS Safety Report 7956785 (Version 4)
Quarter: 2014Q1

REPORT INFORMATION
  Report Type: Spontaneous
  Country: US (occurrence: US)
  Receive Date: 20110524
  Receipt Date: 20140224
  Transmission Date: 20141002
  Serious: Yes (Other)
  Sender: FDA-Public Use
  Company Number: US-BAYER-2011-042229

PATIENT
  Age: 34 Year
  Sex: Female
  Weight: 79.37 kg

DRUGS (9)
  1. YASMIN [Suspect]
     Indication: CONTRACEPTION
     Dosage: UNK
     Route: 048
     Dates: start: 200302, end: 200606
  2. SYNTHROID [Concomitant]
     Indication: THYROID DISORDER
     Dosage: UNK
     Dates: start: 1997
  3. LORTAB [Concomitant]
     Indication: PAIN
     Dosage: UNK
     Dates: start: 2000, end: 2010
  4. IBUPROFEN [Concomitant]
     Indication: PAIN
     Dosage: UNK
     Dates: start: 1996
  5. METHYLPREDNISOLON [Concomitant]
     Dosage: 4 MG DOSEPACK
     Dates: start: 20040920
  6. ZOVIRAX [Concomitant]
     Dosage: 5% CREAM, TID
     Dates: start: 20040920
  7. VALTREX [Concomitant]
     Dosage: 1 G, TID
     Route: 048
     Dates: start: 20040920
  8. TOBRAMYCIN [Concomitant]
     Dosage: 1 GTT, QID, LEFT EYE
     Route: 047
     Dates: start: 20041008
  9. KINEVAC [Concomitant]

REACTIONS (8)
  - Gallbladder disorder [None]
  - Biliary dyskinesia [None]
  - Abdominal pain [None]
  - Pain [None]
  - Emotional distress [None]
  - Anxiety [None]
  - General physical health deterioration [None]
  - Scar [None]
